FAERS Safety Report 20382753 (Version 1)
Quarter: 2022Q1

REPORT INFORMATION
  Report Type: Other
  Country: ES (occurrence: None)
  Receive Date: 20220127
  Receipt Date: 20220127
  Transmission Date: 20220424
  Serious: Yes (Hospitalization)
  Sender: FDA-Public Use
  Company Number: ES-ROCHE-3009778

PATIENT
  Age: 69 Year
  Sex: Female

DRUGS (9)
  1. RIVOTRIL [Suspect]
     Active Substance: CLONAZEPAM
     Indication: Product used for unknown indication
     Route: 065
     Dates: start: 20210723
  2. FENTANYL [Concomitant]
     Active Substance: FENTANYL
     Route: 003
  3. ALBUTEROL [Concomitant]
     Active Substance: ALBUTEROL
  4. GLYCOPYRRONIUM\INDACATEROL [Concomitant]
     Active Substance: GLYCOPYRRONIUM\INDACATEROL
  5. SIMVASTATIN [Concomitant]
     Active Substance: SIMVASTATIN
  6. TRYPTIZOL [Concomitant]
     Active Substance: AMITRIPTYLINE HYDROCHLORIDE
  7. ACETAMINOPHEN [Concomitant]
     Active Substance: ACETAMINOPHEN
  8. IBUPROFEN [Concomitant]
     Active Substance: IBUPROFEN
  9. METAMIZOL [Concomitant]
     Active Substance: METAMIZOLE SODIUM
     Indication: Pain

REACTIONS (8)
  - Swelling face [Unknown]
  - Headache [Unknown]
  - Ear pain [Unknown]
  - Insomnia [Unknown]
  - Tooth loss [Unknown]
  - Eye disorder [Unknown]
  - Cough [Unknown]
  - Lip swelling [Unknown]

NARRATIVE: CASE EVENT DATE: 20211101
